FAERS Safety Report 8558457-0 (Version None)
Quarter: 2012Q3

REPORT INFORMATION
  Report Type: 
  Country: None (occurrence: None)
  Receive Date: 20120801
  Receipt Date: 20120726
  Transmission Date: 20120928
  Serious: Yes (Other)
  Sender: FDA-Public Use
  Company Number: JP-009507513-1207JPN011106

PATIENT

DRUGS (6)
  1. ANTEBATE [Concomitant]
     Dosage: AS NEEDED
     Route: 061
     Dates: start: 20120409, end: 20120502
  2. PEG-INTRON [Suspect]
     Indication: HEPATITIS C
     Dosage: 1.5MCG/KG/WEEK
     Route: 058
     Dates: start: 20120403, end: 20120605
  3. TELAVIC [Suspect]
     Indication: HEPATITIS C
     Route: 048
     Dates: start: 20120403, end: 20120605
  4. PREDNISOLONE [Concomitant]
     Route: 048
     Dates: start: 20120409, end: 20120502
  5. [THERAPY UNSPECIFIED] [Concomitant]
     Dosage: AS NEEDED
     Route: 061
     Dates: start: 20120409, end: 20120502
  6. REBETOL [Suspect]
     Indication: HEPATITIS C
     Route: 048
     Dates: start: 20120403, end: 20120605

REACTIONS (2)
  - MALAISE [None]
  - PLATELET COUNT DECREASED [None]
